FAERS Safety Report 15173835 (Version 2)
Quarter: 2018Q4

REPORT INFORMATION
  Report Type: Report from Study
  Country: US (occurrence: US)
  Receive Date: 20180720
  Receipt Date: 20181017
  Transmission Date: 20190204
  Serious: No
  Sender: FDA-Public Use
  Company Number: US-AMGEN-USASL2018071967

PATIENT
  Age: 68 Year
  Sex: Male

DRUGS (2)
  1. REPATHA [Suspect]
     Active Substance: EVOLOCUMAB
     Indication: HYPERCHOLESTEROLAEMIA
  2. REPATHA [Suspect]
     Active Substance: EVOLOCUMAB
     Indication: BLOOD CHOLESTEROL INCREASED
     Dosage: 140 MG, Q2WK
     Route: 065
     Dates: start: 201801, end: 2018

REACTIONS (8)
  - Arthralgia [Recovered/Resolved]
  - Myalgia [Recovered/Resolved]
  - Gait disturbance [Unknown]
  - Back pain [Recovered/Resolved]
  - Lip swelling [Unknown]
  - Tooth extraction [Unknown]
  - Skin exfoliation [Unknown]
  - Gingival disorder [Recovered/Resolved]

NARRATIVE: CASE EVENT DATE: 2018
